FAERS Safety Report 12207851 (Version 2)
Quarter: 2016Q2

REPORT INFORMATION
  Report Type: Spontaneous
  Country: FR (occurrence: FR)
  Receive Date: 20160324
  Receipt Date: 20160401
  Transmission Date: 20160815
  Serious: Yes (Hospitalization)
  Sender: FDA-Public Use
  Company Number: FR-JNJFOC-20160316093

PATIENT
  Age: 47 Year
  Sex: Male

DRUGS (1)
  1. STELARA [Suspect]
     Active Substance: USTEKINUMAB
     Indication: PSORIASIS
     Route: 058
     Dates: start: 201602

REACTIONS (4)
  - Hypersensitivity [Unknown]
  - Pain [Unknown]
  - Malaise [Unknown]
  - Sleep disorder [Unknown]

NARRATIVE: CASE EVENT DATE: 2016
